FAERS Safety Report 9227294 (Version 1)
Quarter: 2013Q2

REPORT INFORMATION
  Report Type: Spontaneous
  Country: US (occurrence: US)
  Receive Date: 20130412
  Receipt Date: 20130412
  Transmission Date: 20140414
  Serious: Yes (Hospitalization)
  Sender: FDA-Public Use
  Company Number: PHEH2013US008049

PATIENT
  Sex: 0

DRUGS (2)
  1. EXELON PATCH [Suspect]
     Dosage: 13.3 MG, UNK
     Route: 062
  2. NAMENDA [Concomitant]

REACTIONS (2)
  - Catatonia [Unknown]
  - Overdose [Unknown]
